FAERS Safety Report 7412186-5 (Version None)
Quarter: 2011Q2

REPORT INFORMATION
  Report Type: 
  Country: None (occurrence: None)
  Receive Date: 20110413
  Receipt Date: 20110330
  Transmission Date: 20111010
  Serious: Yes (Hospitalization)
  Sender: FDA-Public Use
  Company Number: CA-JNJFOC-20100307144

PATIENT
  Sex: Female
  Weight: 79 kg

DRUGS (4)
  1. MATERNA [Concomitant]
     Route: 048
  2. ERYTHROMYCIN [Concomitant]
     Route: 048
  3. CALCIUM TABLETS [Concomitant]
     Route: 048
  4. REMICADE [Suspect]
     Indication: CROHN'S DISEASE
     Route: 042

REACTIONS (2)
  - CAESAREAN SECTION [None]
  - DRUG EXPOSURE DURING PREGNANCY [None]
